FAERS Safety Report 25895833 (Version 1)
Quarter: 2025Q4

REPORT INFORMATION
  Report Type: Spontaneous
  Country: US (occurrence: US)
  Receive Date: 20251008
  Receipt Date: 20251008
  Transmission Date: 20260119
  Serious: Yes (Hospitalization, Other)
  Sender: SANOFI AVENTIS
  Company Number: US-SA-2025SA296501

PATIENT
  Age: 60 Year
  Sex: Female

DRUGS (4)
  1. DUPIXENT [Suspect]
     Active Substance: DUPILUMAB
     Indication: Asthma
     Dosage: 600 MG, 1X
     Route: 058
  2. DUPIXENT [Suspect]
     Active Substance: DUPILUMAB
     Dosage: 300 MG, QOW
     Route: 058
     Dates: end: 202411
  3. DUPIXENT [Suspect]
     Active Substance: DUPILUMAB
     Dosage: 300 MG, QOW
     Route: 058
     Dates: start: 202506
  4. PENICILLIN [Concomitant]
     Active Substance: PENICILLIN
     Indication: Prophylaxis

REACTIONS (15)
  - Compression fracture [Unknown]
  - Influenza [Unknown]
  - Pneumonia bacterial [Unknown]
  - Sepsis [Unknown]
  - Autoimmune disorder [Unknown]
  - Compression fracture [Unknown]
  - Weight decreased [Unknown]
  - Cellulitis [Unknown]
  - Fall [Unknown]
  - Rib fracture [Unknown]
  - Asthenia [Unknown]
  - Gait disturbance [Unknown]
  - Salivary gland mass [Unknown]
  - Eosinophil count increased [Unknown]
  - Chronic spontaneous urticaria [Not Recovered/Not Resolved]

NARRATIVE: CASE EVENT DATE: 20240101
